FAERS Safety Report 4594267-7 (Version None)
Quarter: 2005Q1

REPORT INFORMATION
  Report Type: 
  Country: None (occurrence: None)
  Receive Date: 20050301
  Receipt Date: 20040826
  Transmission Date: 20050727
  Serious: No
  Sender: FDA-Public Use
  Company Number: US-GLAXOSMITHKLINE-A0523634A

PATIENT
  Sex: Male

DRUGS (5)
  1. VALTREX [Suspect]
     Dosage: 1G THREE TIMES PER DAY
     Route: 048
  2. PLAVIX [Concomitant]
  3. DIABETES MEDICATION [Concomitant]
  4. ANTIHYPERTENSIVES [Concomitant]
  5. MULTIPLE MEDICATIONS [Concomitant]

REACTIONS (1)
  - HAEMATURIA [None]
